FAERS Safety Report 9670474 (Version 4)
Quarter: 2016Q2

REPORT INFORMATION
  Report Type: Report from Study
  Country: US (occurrence: US)
  Receive Date: 20131106
  Receipt Date: 20160406
  Transmission Date: 20160815
  Serious: Yes (Other)
  Sender: FDA-Public Use
  Company Number: US-ROCHE-1272577

PATIENT
  Sex: Female

DRUGS (11)
  1. LIPITOR [Concomitant]
     Active Substance: ATORVASTATIN CALCIUM
  2. WARFARIN [Concomitant]
     Active Substance: WARFARIN
  3. CARVEDILOL. [Concomitant]
     Active Substance: CARVEDILOL
     Route: 065
  4. LUCENTIS [Suspect]
     Active Substance: RANIBIZUMAB
     Indication: DIABETIC RETINOPATHY
     Dosage: BOTH EYES, OD ON 22-AUG-2013
     Route: 050
     Dates: start: 20130822, end: 20130822
  5. TIMOLOL. [Concomitant]
     Active Substance: TIMOLOL
     Route: 065
  6. BETADINE [Concomitant]
     Active Substance: POVIDONE-IODINE
  7. LUCENTIS [Suspect]
     Active Substance: RANIBIZUMAB
     Indication: VITREOUS HAEMORRHAGE
     Dosage: OD
     Route: 050
     Dates: start: 20131104
  8. LUCENTIS [Suspect]
     Active Substance: RANIBIZUMAB
     Indication: TYPE 2 DIABETES MELLITUS
     Dosage: OD AND OS
     Route: 050
     Dates: start: 20131003
  9. AMLOPIDINE DURA [Concomitant]
  10. LUCENTIS [Suspect]
     Active Substance: RANIBIZUMAB
     Indication: EYE DISORDER
  11. COREG [Concomitant]
     Active Substance: CARVEDILOL

REACTIONS (6)
  - Vitreous floaters [Unknown]
  - Blood glucose increased [Unknown]
  - Cataract nuclear [Unknown]
  - Photopsia [Unknown]
  - Vision blurred [Unknown]
  - Blindness unilateral [Unknown]
